FAERS Safety Report 25691184 (Version 1)
Quarter: 2025Q3

REPORT INFORMATION
  Report Type: Spontaneous
  Country: EU (occurrence: EU)
  Receive Date: 20250818
  Receipt Date: 20250818
  Transmission Date: 20251020
  Serious: Yes (Other)
  Sender: INSUD PHARMA
  Company Number: EU-INSUD PHARMA-2508IT06618

PATIENT

DRUGS (2)
  1. FOSFOMYCIN [Interacting]
     Active Substance: FOSFOMYCIN
     Indication: Infection prophylaxis
     Route: 065
  2. TACROLIMUS [Interacting]
     Active Substance: TACROLIMUS
     Indication: Heart transplant
     Route: 065

REACTIONS (8)
  - Renal tubular acidosis [Recovered/Resolved]
  - Metabolic acidosis [Recovered/Resolved]
  - Hyperkalaemia [Recovered/Resolved]
  - Resting tremor [Recovered/Resolved]
  - Intention tremor [Recovered/Resolved]
  - Drug interaction [Recovered/Resolved]
  - Immunosuppressant drug level increased [Recovered/Resolved]
  - Off label use [Unknown]
